FAERS Safety Report 18134120 (Version 2)
Quarter: 2020Q3

REPORT INFORMATION
  Report Type: Spontaneous
  Country: US (occurrence: US)
  Receive Date: 20200811
  Receipt Date: 20200812
  Transmission Date: 20201103
  Serious: No
  Sender: FDA-Public Use
  Company Number: US-BRISTOL-MYERS SQUIBB COMPANY-BMS-2020-064504

PATIENT
  Sex: Male

DRUGS (1)
  1. SPRYCEL [Suspect]
     Active Substance: DASATINIB
     Indication: BONE CANCER
     Dosage: UNK UNK, BID
     Route: 048
     Dates: start: 202007

REACTIONS (2)
  - Adverse drug reaction [Unknown]
  - Off label use [Unknown]
